FAERS Safety Report 7431961-4 (Version None)
Quarter: 2011Q2

REPORT INFORMATION
  Report Type: 
  Country: None (occurrence: None)
  Receive Date: 20110419
  Receipt Date: 20110419
  Transmission Date: 20111010
  Serious: No
  Sender: FDA-Public Use
  Company Number: None

PATIENT
  Age: 41 Year
  Sex: Male
  Weight: 81.6475 kg

DRUGS (1)
  1. PROPECIA [Suspect]
     Indication: ANDROGENETIC ALOPECIA
     Dosage: 1 MG PER DAY PO
     Route: 048
     Dates: start: 20100801, end: 20100901

REACTIONS (9)
  - FAT TISSUE INCREASED [None]
  - NIGHT SWEATS [None]
  - ERECTILE DYSFUNCTION [None]
  - HOT FLUSH [None]
  - MUSCLE ATROPHY [None]
  - LOSS OF LIBIDO [None]
  - TESTICULAR PAIN [None]
  - CONFUSIONAL STATE [None]
  - AMNESIA [None]
